FAERS Safety Report 5465468-0 (Version None)
Quarter: 2007Q3

REPORT INFORMATION
  Report Type: 
  Country: None (occurrence: None)
  Receive Date: 20070920
  Receipt Date: 20070920
  Transmission Date: 20080115
  Serious: Yes (Other)
  Sender: FDA-Public Use
  Company Number: None

PATIENT
  Age: 62 Year
  Weight: 79.8331 kg

DRUGS (2)
  1. HYDROCODONE BITARTRATE + ACETAMINOPHEN [Suspect]
     Indication: MIGRAINE
     Dates: start: 20020101, end: 20070101
  2. HYDROCODONE BITARTRATE + ACETAMINOPHEN [Suspect]
     Indication: PAIN IN EXTREMITY
     Dates: start: 20020101, end: 20070101

REACTIONS (2)
  - DRUG INEFFECTIVE [None]
  - PHARMACEUTICAL PRODUCT COMPLAINT [None]
